FAERS Safety Report 9238130 (Version 1)
Quarter: 2013Q2

REPORT INFORMATION
  Report Type: Spontaneous
  Country: US (occurrence: None)
  Receive Date: 20130415
  Receipt Date: 20130415
  Transmission Date: 20140414
  Serious: Yes (Other)
  Sender: FDA-Public Use
  Company Number: SYM-2013-02669

PATIENT
  Age: 61 Year
  Sex: Female

DRUGS (3)
  1. XENAZINE (TETRABENAZINE) (25 MILLIGRAM, TABLETS) (TETRABENAZINE) [Suspect]
     Indication: DYSKINESIA
     Route: 048
     Dates: start: 201301, end: 20130411
  2. SIMVASTATIN [Concomitant]
  3. CITALOPRAM [Concomitant]

REACTIONS (3)
  - Dyspnoea [None]
  - Somnolence [None]
  - Cough [None]
